FAERS Safety Report 4422126-9 (Version None)
Quarter: 2004Q3

REPORT INFORMATION
  Report Type: 
  Country: None (occurrence: None)
  Receive Date: 20040802
  Receipt Date: 20040716
  Transmission Date: 20050211
  Serious: Yes (Hospitalization)
  Sender: FDA-Public Use
  Company Number: 601415

PATIENT
  Age: 48 Year
  Sex: Female

DRUGS (17)
  1. GAMMAGARD S/D [Suspect]
     Indication: HYPOGAMMAGLOBULINAEMIA
     Dosage: 50 GM; QM; INTRAVENOUS
     Route: 042
     Dates: start: 20040526, end: 20040623
  2. GAMMAGARD S/D [Suspect]
  3. GAMMAGARD S/D [Suspect]
  4. AUGMENTIN '125' [Concomitant]
  5. LANTUS [Concomitant]
  6. SOLU-MEDROL [Concomitant]
  7. BACTRIM [Concomitant]
  8. ASPIRIN [Concomitant]
  9. METHADONE HCL [Concomitant]
  10. PEPSIN [Concomitant]
  11. SPECTRAZOL CREAM [Concomitant]
  12. SYNTHROID [Concomitant]
  13. ATENOLOL [Concomitant]
  14. ALDACTAZIDE [Concomitant]
  15. ALTACE [Concomitant]
  16. TYLENOL [Concomitant]
  17. BENADRYL [Concomitant]

REACTIONS (10)
  - ABDOMINAL DISTENSION [None]
  - CONSTIPATION [None]
  - DYSPHAGIA [None]
  - DYSPNOEA [None]
  - FLUID OVERLOAD [None]
  - LOCAL SWELLING [None]
  - MEDICATION ERROR [None]
  - OROPHARYNGEAL SWELLING [None]
  - THROAT TIGHTNESS [None]
  - WHEEZING [None]
